FAERS Safety Report 7610242-X (Version None)
Quarter: 2011Q3

REPORT INFORMATION
  Report Type: 
  Country: None (occurrence: None)
  Receive Date: 20110713
  Receipt Date: 20110713
  Transmission Date: 20111222
  Serious: Yes (Other)
  Sender: FDA-Public Use
  Company Number: None

PATIENT
  Sex: Male
  Weight: 68.0396 kg

DRUGS (2)
  1. GALANTAMINE HYDROBROMIDE (RAZADYNE) [Suspect]
     Indication: DEMENTIA ALZHEIMER'S TYPE
     Dosage: 8MG BID PO
     Route: 048
     Dates: start: 20110706
  2. GALANTAMINE HYDROBROMIDE (RAZADYNE) [Suspect]
     Indication: DEMENTIA ALZHEIMER'S TYPE
     Dosage: 8MG BID PO
     Route: 048
     Dates: start: 20110706

REACTIONS (3)
  - DYSPNOEA [None]
  - MUSCULOSKELETAL CHEST PAIN [None]
  - FEELING HOT [None]
